FAERS Safety Report 10024939 (Version 2)
Quarter: 2014Q1

REPORT INFORMATION
  Report Type: Spontaneous
  Country: IL (occurrence: IL)
  Receive Date: 20140320
  Receipt Date: 20140320
  Transmission Date: 20141002
  Serious: Yes (Other)
  Sender: FDA-Public Use
  Company Number: IL-ABBVIE-12P-082-0908906-00

PATIENT
  Age: 20 Year
  Sex: Female
  Weight: 55 kg

DRUGS (3)
  1. HUMIRA 40 MG/ 0.8 ML PRE-FILLED SYRINGE [Suspect]
     Indication: UVEITIS
     Dates: start: 2010
  2. HUMIRA 40 MG/ 0.8 ML PRE-FILLED SYRINGE [Suspect]
     Indication: RHEUMATOID ARTHRITIS
  3. EYE DROPS [Concomitant]
     Indication: UVEITIS

REACTIONS (2)
  - Mass [Not Recovered/Not Resolved]
  - Headache [Recovering/Resolving]
